FAERS Safety Report 4613444-X (Version None)
Quarter: 2005Q1

REPORT INFORMATION
  Report Type: 
  Country: None (occurrence: None)
  Receive Date: 20050317
  Receipt Date: 20050317
  Transmission Date: 20050727
  Serious: Yes (Life-Threatening, Hospitalization)
  Sender: FDA-Public Use
  Company Number: None

PATIENT
  Age: 27 Year
  Sex: Male
  Weight: 70 kg

DRUGS (4)
  1. PAPAVERINE 27.3 MG/ML [Suspect]
     Indication: ERECTILE DYSFUNCTION
     Dosage: INTRACAVEROUS INJECTION
     Route: 017
  2. PHENTOLAMINE .455 MG/ML [Suspect]
     Indication: SPINAL CORD INJURY
     Dosage: INTRACAVEROUS INJECTION
     Route: 017
  3. PROSTAGLANDIN EI: 45 MCG/ML [Suspect]
     Indication: ERECTILE DYSFUNCTION
     Dosage: INTRACAVEROUS INJECTION
     Route: 017
  4. PROSTAGLANDIN EI: 45 MCG/ML [Suspect]
     Indication: SPINAL CORD INJURY
     Dosage: INTRACAVEROUS INJECTION
     Route: 017

REACTIONS (5)
  - APNOEA [None]
  - BLINDNESS [None]
  - CEREBRAL ISCHAEMIA [None]
  - CONVULSION [None]
  - HEADACHE [None]
